FAERS Safety Report 8222421-1 (Version None)
Quarter: 2012Q1

REPORT INFORMATION
  Report Type: 
  Country: None (occurrence: None)
  Receive Date: 20120320
  Receipt Date: 20120309
  Transmission Date: 20120608
  Serious: Yes (Life-Threatening, Hospitalization)
  Sender: FDA-Public Use
  Company Number: DE-PFIZER INC-2012059088

PATIENT
  Age: 81 Year
  Sex: Female

DRUGS (7)
  1. SERTRALINE HYDROCHLORIDE [Suspect]
     Dosage: 50 MG/DAY
     Route: 048
     Dates: start: 20111123, end: 20111201
  2. MELPERONE [Suspect]
     Dosage: 50 MG/DAY
     Route: 048
     Dates: start: 20111124, end: 20111125
  3. SERTRALINE HYDROCHLORIDE [Suspect]
     Dosage: 25 MG/DAY
     Route: 048
     Dates: start: 20111118, end: 20111122
  4. ZYPREXA [Suspect]
     Dosage: 10 MG/DAY
     Route: 048
  5. SERTRALINE HYDROCHLORIDE [Suspect]
     Dosage: 75 MG/DAY
     Route: 048
     Dates: start: 20111202
  6. MELPERONE [Suspect]
     Dosage: 37.5 MG/DAY
     Route: 048
     Dates: start: 20111126, end: 20111204
  7. MELPERONE [Suspect]
     Dosage: 12.5 MG/DAY
     Route: 048
     Dates: start: 20111205

REACTIONS (5)
  - CARDIOMYOPATHY [None]
  - ATRIAL FLUTTER [None]
  - SYNCOPE [None]
  - ATRIAL FIBRILLATION [None]
  - GASTROENTERITIS NOROVIRUS [None]
